FAERS Safety Report 6034670-1 (Version None)
Quarter: 2009Q1

REPORT INFORMATION
  Report Type: 
  Country: None (occurrence: None)
  Receive Date: 20090112
  Receipt Date: 20081229
  Transmission Date: 20090719
  Serious: No
  Sender: FDA-Public Use
  Company Number: GB-DENTSPLY-2008-0093-EUR

PATIENT
  Sex: Female

DRUGS (1)
  1. CITANEST [Suspect]

REACTIONS (6)
  - DIZZINESS [None]
  - HYPERHIDROSIS [None]
  - HYPOKINESIA [None]
  - NAUSEA [None]
  - NYSTAGMUS [None]
  - VISION BLURRED [None]
